FAERS Safety Report 4343610-2 (Version None)
Quarter: 2004Q2

REPORT INFORMATION
  Report Type: 
  Country: None (occurrence: None)
  Receive Date: 20040421
  Receipt Date: 20040421
  Transmission Date: 20050107
  Serious: Yes (Death, Hospitalization)
  Sender: FDA-Public Use
  Company Number: None

PATIENT
  Age: 65 Year
  Sex: Male
  Weight: 83.1 kg

DRUGS (13)
  1. FLUDARABINE ATG 2250MG X 2 020104-020204 [Suspect]
     Indication: CHEMOTHERAPY
     Dosage: 56MG QD INTRAVENOUS
     Route: 042
     Dates: start: 20040126, end: 20040129
  2. CYTOXAN [Suspect]
     Indication: STEM CELL TRANSPLANT
     Dosage: 1.85 G QD INTRAVENOUS
     Route: 042
     Dates: start: 20040131, end: 20040201
  3. CELLCEPT [Concomitant]
  4. OCTRCOTIDE [Concomitant]
  5. HYDROCORTISONE [Concomitant]
  6. CIFPROFLOXACIN [Concomitant]
  7. LINEZOLID [Concomitant]
  8. CYCLOSPORINE [Concomitant]
  9. FILGRASTIM [Concomitant]
  10. AMLODIPINE [Concomitant]
  11. FUROSEMIDE [Concomitant]
  12. URSODIOL [Concomitant]
  13. MORPHINE [Concomitant]

REACTIONS (6)
  - BLOOD CREATININE ABNORMAL [None]
  - GRAFT VERSUS HOST DISEASE [None]
  - HEPATIC INFECTION [None]
  - HYPOXIA [None]
  - PYREXIA [None]
  - RESPIRATORY FAILURE [None]
